FAERS Safety Report 24149789 (Version 1)
Quarter: 2024Q3

REPORT INFORMATION
  Report Type: Spontaneous
  Country: DE (occurrence: DE)
  Receive Date: 20240730
  Receipt Date: 20240730
  Transmission Date: 20241016
  Serious: No
  Sender: ALKEM
  Company Number: None

PATIENT
  Age: 22 Year
  Sex: Female
  Weight: 53 kg

DRUGS (1)
  1. CEFUROXIME AXETIL [Suspect]
     Active Substance: CEFUROXIME AXETIL
     Indication: Urinary tract infection
     Dosage: 1000 MILLIGRAM, QD (EVERY 1 DAY)
     Route: 048
     Dates: start: 20231120, end: 20231126

REACTIONS (5)
  - Back pain [Recovering/Resolving]
  - Pain in extremity [Recovering/Resolving]
  - Diarrhoea [Recovering/Resolving]
  - Dizziness [Recovering/Resolving]
  - Myalgia [Recovering/Resolving]

NARRATIVE: CASE EVENT DATE: 20231123
